FAERS Safety Report 12545094 (Version 1)
Quarter: 2016Q3

REPORT INFORMATION
  Report Type: Report from Study
  Country: US (occurrence: US)
  Receive Date: 20160711
  Receipt Date: 20160711
  Transmission Date: 20161109
  Serious: Yes (Other)
  Sender: FDA-Public Use
  Company Number: US-JNJFOC-20160704713

PATIENT
  Age: 91 Year
  Sex: Male

DRUGS (3)
  1. IMBRUVICA [Suspect]
     Active Substance: IBRUTINIB
     Indication: CHOLANGIOCARCINOMA
     Route: 048
     Dates: start: 20160630
  2. IMBRUVICA [Suspect]
     Active Substance: IBRUTINIB
     Indication: CHOLANGIOCARCINOMA
     Route: 048
     Dates: start: 20160609, end: 201606
  3. IMBRUVICA [Suspect]
     Active Substance: IBRUTINIB
     Indication: CHOLANGIOCARCINOMA
     Route: 048
     Dates: end: 201606

REACTIONS (5)
  - Product use issue [Not Recovered/Not Resolved]
  - Incorrect dose administered [Not Recovered/Not Resolved]
  - Incontinence [Unknown]
  - Off label use [Not Recovered/Not Resolved]
  - Confusional state [Unknown]

NARRATIVE: CASE EVENT DATE: 20160622
